FAERS Safety Report 6217653-8 (Version None)
Quarter: 2009Q2

REPORT INFORMATION
  Report Type: 
  Country: None (occurrence: None)
  Receive Date: 20090603
  Receipt Date: 20090603
  Transmission Date: 20091009
  Serious: No
  Sender: FDA-Public Use
  Company Number: None

PATIENT
  Age: 8 Year
  Sex: Male
  Weight: 38.5557 kg

DRUGS (2)
  1. DIVALPROEX SODIUM [Suspect]
     Dosage: 3 TIMES A DAY
     Dates: start: 20090515
  2. DIVALPROEX SODIUM [Suspect]
     Dosage: 3 TIMES A DAY
     Dates: start: 20090516

REACTIONS (1)
  - MALAISE [None]
